FAERS Safety Report 6532569-5 (Version None)
Quarter: 2010Q1

REPORT INFORMATION
  Report Type: 
  Country: None (occurrence: None)
  Receive Date: 20100111
  Receipt Date: 20091230
  Transmission Date: 20100710
  Serious: Yes (Hospitalization, Other)
  Sender: FDA-Public Use
  Company Number: US-ROCHE-674952

PATIENT
  Sex: Female
  Weight: 62.6 kg

DRUGS (4)
  1. ACCUTANE [Suspect]
     Dosage: RECEIVED ISOTRETINOIN ON AND OFF.
     Route: 065
     Dates: start: 19940101
  2. ACCUTANE [Suspect]
     Route: 065
     Dates: start: 19950426, end: 19961201
  3. VIBRA-TABS [Concomitant]
     Indication: ACNE
     Dates: start: 19950101
  4. DIANE-35 [Concomitant]

REACTIONS (12)
  - ANAEMIA [None]
  - ANAL FISSURE [None]
  - BLOOD CHOLESTEROL INCREASED [None]
  - BLOOD TRIGLYCERIDES INCREASED [None]
  - COLITIS ULCERATIVE [None]
  - ECZEMA [None]
  - EPISTAXIS [None]
  - INFLAMMATORY BOWEL DISEASE [None]
  - IRRITABLE BOWEL SYNDROME [None]
  - LIP DRY [None]
  - PHOTOSENSITIVITY REACTION [None]
  - SKIN EXFOLIATION [None]
